FAERS Safety Report 14063919 (Version 2)
Quarter: 2018Q1

REPORT INFORMATION
  Report Type: Spontaneous
  Country: AU (occurrence: AU)
  Receive Date: 20171009
  Receipt Date: 20180306
  Transmission Date: 20180508
  Serious: Yes (Death)
  Sender: FDA-Public Use
  Company Number: PHHY2017AU147745

PATIENT
  Age: 44 Year
  Sex: Male

DRUGS (16)
  1. CYTARABINE. [Suspect]
     Active Substance: CYTARABINE
     Indication: ACUTE MYELOID LEUKAEMIA
     Dosage: 1500 MG/M2, QD (DAY 1,3,5,7 )
     Route: 042
     Dates: start: 20150722
  2. IDARUBICIN [Suspect]
     Active Substance: IDARUBICIN
     Dosage: 9 MG/M2, QD (DAY 1 - 3 )
     Route: 042
     Dates: start: 20151007
  3. CYTARABINE. [Suspect]
     Active Substance: CYTARABINE
     Dosage: 2000 MG/M2, QD (DAY 1-5 )
     Route: 042
     Dates: start: 20160609
  4. POSACONAZOLE [Suspect]
     Active Substance: POSACONAZOLE
     Indication: PRODUCT USED FOR UNKNOWN INDICATION
     Dosage: UNK
     Route: 065
     Dates: start: 20150722
  5. AMSACRINE [Suspect]
     Active Substance: AMSACRINE
     Indication: ACUTE MYELOID LEUKAEMIA
     Dosage: 40 MG/M2, QD (DAY 1-3 )
     Route: 042
     Dates: start: 20160609
  6. ETOPOSIDE. [Suspect]
     Active Substance: ETOPOSIDE
     Dosage: 75 MG/M2, QD (DAY 1 - 7)
     Route: 042
     Dates: start: 20151007
  7. CYTARABINE. [Suspect]
     Active Substance: CYTARABINE
     Dosage: 1500 MG/M2, QD (DAY 1,3,5,7 )
     Route: 042
     Dates: start: 20151007
  8. ETOPOSIDE. [Suspect]
     Active Substance: ETOPOSIDE
     Indication: ACUTE MYELOID LEUKAEMIA
     Dosage: 75 MG/M2, QD (DAY 1 - 7)
     Route: 042
     Dates: start: 20150829
  9. IDARUBICIN [Suspect]
     Active Substance: IDARUBICIN
     Dosage: 9 MG/M2, QD (DAY 1 - 3 )
     Route: 042
     Dates: start: 20150829
  10. POSACONAZOLE [Suspect]
     Active Substance: POSACONAZOLE
     Dosage: UNK
     Route: 065
     Dates: start: 20150829
  11. IDARUBICIN [Suspect]
     Active Substance: IDARUBICIN
     Indication: ACUTE MYELOID LEUKAEMIA
     Dosage: 12 MG/M2, QD (DAY 1-3)
     Route: 042
     Dates: start: 20150722
  12. POSACONAZOLE [Suspect]
     Active Substance: POSACONAZOLE
     Dosage: UNK
     Route: 065
     Dates: start: 20151007
  13. POSACONAZOLE [Suspect]
     Active Substance: POSACONAZOLE
     Dosage: 300 MG, BID
     Route: 065
     Dates: start: 20160609
  14. FLUDARABINE [Suspect]
     Active Substance: FLUDARABINE PHOSPHATE
     Indication: ACUTE MYELOID LEUKAEMIA
     Dosage: 30 MG/M2, QD (DAY 1-5 )
     Route: 042
     Dates: start: 20160609
  15. CYTARABINE. [Suspect]
     Active Substance: CYTARABINE
     Dosage: 3000 MG/M2, BID (DAY 1 - 7 )
     Route: 042
     Dates: start: 20150829
  16. G-CSF [Suspect]
     Active Substance: GRANULOCYTE COLONY-STIMULATING FACTOR NOS
     Indication: ACUTE MYELOID LEUKAEMIA
     Dosage: 200 UG, QD (DAY 0-6 )
     Route: 058
     Dates: start: 20160609

REACTIONS (2)
  - Drug effect incomplete [Unknown]
  - Death [Fatal]

NARRATIVE: CASE EVENT DATE: 20161116
